FAERS Safety Report 4368067-7 (Version None)
Quarter: 2004Q2

REPORT INFORMATION
  Report Type: 
  Country: None (occurrence: None)
  Receive Date: 20040602
  Receipt Date: 20040519
  Transmission Date: 20050107
  Serious: Yes (Hospitalization)
  Sender: FDA-Public Use
  Company Number: 200412039FR

PATIENT
  Age: 79 Year
  Sex: Male

DRUGS (2)
  1. LASILIX 40 MG [Suspect]
     Route: 048
  2. COVERSYL 2 MG [Suspect]
     Route: 048

REACTIONS (11)
  - BLOOD ALKALINE PHOSPHATASE INCREASED [None]
  - BLOOD CREATINE PHOSPHOKINASE INCREASED [None]
  - BLOOD FOLATE DECREASED [None]
  - DEHYDRATION [None]
  - GAMMA-GLUTAMYLTRANSFERASE INCREASED [None]
  - GASTRITIS ATROPHIC [None]
  - HAEMOGLOBIN DECREASED [None]
  - HYPERKALAEMIA [None]
  - PAIN IN EXTREMITY [None]
  - RENAL FAILURE [None]
  - WEIGHT DECREASED [None]
